FAERS Safety Report 10578096 (Version 1)
Quarter: 2014Q4

REPORT INFORMATION
  Report Type: Spontaneous
  Country: DE (occurrence: DE)
  Receive Date: 20141112
  Receipt Date: 20141112
  Transmission Date: 20150529
  Serious: Yes (Other)
  Sender: FDA-Public Use
  Company Number: DE-AUROBINDO-AUR-APL-2014-11818

PATIENT
  Age: 42 Year
  Sex: Female
  Weight: 92 kg

DRUGS (3)
  1. L-THYROXIN [Concomitant]
     Active Substance: LEVOTHYROXINE SODIUM
     Indication: HYPOTHYROIDISM
     Dosage: 75 ?G, ONCE A DAY
     Route: 048
  2. CITALOPRAM [Suspect]
     Active Substance: CITALOPRAM HYDROBROMIDE
     Indication: POST-TRAUMATIC STRESS DISORDER
     Dosage: 40 MG, ONCE A DAY
     Route: 048
  3. SEROQUEL [Suspect]
     Active Substance: QUETIAPINE FUMARATE
     Indication: POST-TRAUMATIC STRESS DISORDER
     Dosage: 400 MG, 3 TIMES A DAY
     Route: 048

REACTIONS (2)
  - Gestational diabetes [Recovered/Resolved]
  - Maternal exposure during pregnancy [Unknown]
